FAERS Safety Report 12713758 (Version 1)
Quarter: 2016Q3

REPORT INFORMATION
  Report Type: Spontaneous
  Country: IE (occurrence: IE)
  Receive Date: 20160904
  Receipt Date: 20160904
  Transmission Date: 20161109
  Serious: Yes (Other)
  Sender: FDA-Public Use
  Company Number: PHFR2016IE007092

PATIENT
  Age: 62 Year
  Sex: Female

DRUGS (5)
  1. ZISPIN [Concomitant]
     Active Substance: MIRTAZAPINE
     Indication: DEPRESSION
     Dosage: 30 MG, QD
     Route: 048
     Dates: start: 20160421
  2. ULTIBRO BREEZHALER [Suspect]
     Active Substance: GLYCOPYRRONIUM\INDACATEROL
     Indication: PRODUCT USED FOR UNKNOWN INDICATION
     Dosage: 1 DF, UNK
     Route: 055
  3. PROZAC [Concomitant]
     Active Substance: FLUOXETINE HYDROCHLORIDE
     Indication: DEPRESSION
     Dosage: 20 MG, QD
     Route: 048
     Dates: start: 19980611
  4. ZOPITAN [Concomitant]
     Indication: INSOMNIA
     Dosage: 7.5 MG, NOCTE
     Route: 048
     Dates: start: 20160505, end: 20160530
  5. ANXICALM [Concomitant]
     Indication: ANXIETY
     Dosage: 10 MG, QD
     Route: 048
     Dates: start: 20160505, end: 20160530

REACTIONS (3)
  - Herpes zoster [Unknown]
  - Groin pain [Unknown]
  - Dysuria [Unknown]

NARRATIVE: CASE EVENT DATE: 20160530
